FAERS Safety Report 5917863-0 (Version None)
Quarter: 2008Q4

REPORT INFORMATION
  Report Type: 
  Country: None (occurrence: None)
  Receive Date: 20081014
  Receipt Date: 20081007
  Transmission Date: 20090506
  Serious: No
  Sender: FDA-Public Use
  Company Number: US-JNJFOC-20081002394

PATIENT
  Age: 25 Year
  Sex: Female

DRUGS (3)
  1. INVEGA [Suspect]
     Route: 048
     Dates: end: 20081007
  2. INVEGA [Suspect]
     Indication: SCHIZOPHRENIA
     Route: 048
     Dates: end: 20081007
  3. PAXIL [Concomitant]

REACTIONS (1)
  - VOMITING [None]
